FAERS Safety Report 8696827 (Version 5)
Quarter: 2014Q2

REPORT INFORMATION
  Report Type: Report from Study
  Country: US (occurrence: US)
  Receive Date: 20120801
  Receipt Date: 20140611
  Transmission Date: 20141212
  Serious: Yes (Hospitalization, Other)
  Sender: FDA-Public Use
  Company Number: US-ROCHE-1093604

PATIENT
  Age: 67 Year
  Sex: Female

DRUGS (18)
  1. VEMURAFENIB [Suspect]
     Indication: PAPILLARY THYROID CANCER
     Dosage: DATE OF LAST DOSE: 23/JUL/2012, DOSE INTERRUPTED
     Route: 065
     Dates: start: 20120628, end: 20120724
  2. VEMURAFENIB [Suspect]
     Dosage: RESTARTED
     Route: 065
     Dates: start: 20120731
  3. LEVOTHYROXINE [Concomitant]
     Route: 048
     Dates: start: 20071206, end: 20120830
  4. LEVOTHYROXINE [Concomitant]
     Route: 048
     Dates: start: 20120831
  5. METOCLOPRAMIDE [Concomitant]
     Route: 048
     Dates: start: 20120628
  6. AUGMENTIN [Concomitant]
     Route: 048
     Dates: start: 20120628, end: 20120706
  7. CODEINE [Concomitant]
     Route: 048
     Dates: start: 20111206, end: 20120823
  8. UREA CREAM [Concomitant]
     Dosage: 1 APPLICATION
     Route: 061
     Dates: start: 20120719
  9. GUAIFENESIN SYRUP [Concomitant]
     Route: 048
     Dates: start: 20111206
  10. BACITRACIN/POLYMYXIN [Concomitant]
     Dosage: 1 APPLICATION
     Route: 061
     Dates: start: 20120712
  11. OXYCODONE [Concomitant]
     Route: 048
     Dates: start: 20120716
  12. NYSTATIN [Concomitant]
     Route: 048
     Dates: start: 20120823
  13. CLOBETASOL [Concomitant]
     Dosage: 1 APPLICATION
     Route: 061
     Dates: start: 20120816, end: 20120830
  14. PREDNISONE [Concomitant]
     Route: 048
     Dates: start: 20120901, end: 20120905
  15. PREDNISONE [Concomitant]
     Route: 048
     Dates: start: 20120906, end: 20120910
  16. PREDNISONE [Concomitant]
     Route: 048
     Dates: start: 20120911
  17. LOPERAMIDE [Concomitant]
     Route: 048
     Dates: start: 20121001, end: 20121016
  18. ALCLOMETASONE [Concomitant]
     Dosage: 1 APPLICATION
     Route: 061
     Dates: start: 20120712

REACTIONS (1)
  - Dysphagia [Recovered/Resolved with Sequelae]
